FAERS Safety Report 9013530 (Version 2)
Quarter: 2013Q1

REPORT INFORMATION
  Report Type: Spontaneous
  Country: FR (occurrence: None)
  Receive Date: 20121231
  Receipt Date: 20130122
  Transmission Date: 20140127
  Serious: Yes (Death, Hospitalization, Other)
  Sender: FDA-Public Use
  Company Number: DSA_61539_2012

PATIENT
  Age: 55 Year
  Sex: Female

DRUGS (12)
  1. 5-FU [Suspect]
     Indication: COLORECTAL CANCER METASTATIC
     Dosage: (3600 MG, EVERY CYCLE INTRAVENOUS (NOT OTHERWISE SPECIFIED))
     Route: 042
     Dates: start: 20121123, end: 20121123
  2. AFLIBERCEPT [Suspect]
     Indication: COLORECTAL CANCER METASTATIC
     Dosage: EVERY CYCLE
     Route: 042
     Dates: start: 20121123, end: 20121123
  3. IRINOTECAN (IRINOTECAN) [Suspect]
     Indication: COLORECTAL CANCER METASTATIC
     Dosage: (270 MG, EVERY CYCLE INTRAVENOUS (NOT OTHERWISE SPECIFIED))
     Route: 042
     Dates: start: 20121123, end: 20121123
  4. LEUCOVORIN /00566701/ [Suspect]
     Indication: COLORECTAL CANCER METASTATIC
     Dosage: EVERY CYCLE
     Route: 042
     Dates: start: 20121123, end: 20121123
  5. ZOPHREN /00955302/ [Concomitant]
  6. PERFALGAN [Concomitant]
  7. FENTANYL [Concomitant]
  8. ORACILLINE /00001801/ [Concomitant]
  9. EUPANTOL [Concomitant]
  10. STILNOX [Concomitant]
  11. ACTIQ [Concomitant]
  12. ATROPIN /00002801/ [Concomitant]

REACTIONS (8)
  - Hyperglycaemia [None]
  - Pulmonary oedema [None]
  - White blood cell count decreased [None]
  - Septic shock [None]
  - Neutropenia [None]
  - Leukopenia [None]
  - Hypotension [None]
  - Agitation [None]
